FAERS Safety Report 15389011 (Version 1)
Quarter: 2018Q3

REPORT INFORMATION
  Report Type: Spontaneous
  Country: FR (occurrence: FR)
  Receive Date: 20180917
  Receipt Date: 20180917
  Transmission Date: 20181010
  Serious: Yes (Hospitalization)
  Sender: FDA-Public Use
  Company Number: FR-BIOGEN-2018BI00632965

PATIENT
  Age: 3 Year
  Sex: Female

DRUGS (1)
  1. SPINRAZA [Suspect]
     Active Substance: NUSINERSEN
     Indication: SPINAL MUSCULAR ATROPHY
     Dosage: SINCE 14 MONTHS
     Route: 065
     Dates: start: 2017

REACTIONS (2)
  - Cardiopulmonary failure [Not Recovered/Not Resolved]
  - Viral myocarditis [Not Recovered/Not Resolved]

NARRATIVE: CASE EVENT DATE: 20180910
